FAERS Safety Report 23638468 (Version 1)
Quarter: 2024Q1

REPORT INFORMATION
  Report Type: Spontaneous
  Country: US (occurrence: US)
  Receive Date: 20240315
  Receipt Date: 20240315
  Transmission Date: 20240410
  Serious: Yes (Other)
  Sender: FDA-Public Use
  Company Number: US-009507513-2403USA003580

PATIENT
  Age: 54 Year
  Sex: Male

DRUGS (3)
  1. KEYTRUDA [Suspect]
     Active Substance: PEMBROLIZUMAB
     Dosage: UNK, Q3W; FORM OF ADMINISTRATION: INFUSION.
     Route: 042
     Dates: end: 202402
  2. LENVATINIB MESYLATE [Suspect]
     Active Substance: LENVATINIB MESYLATE
     Indication: Renal cancer
     Dosage: 14 MILLIGRAM, QD
     Route: 048
     Dates: start: 20230927
  3. LENVATINIB MESYLATE [Suspect]
     Active Substance: LENVATINIB MESYLATE
     Dosage: 4 MILLIGRAM, QD
     Route: 048
     Dates: end: 20240229

REACTIONS (4)
  - Pancreatitis [Unknown]
  - Weight increased [Unknown]
  - Aspartate aminotransferase increased [Unknown]
  - Lipase increased [Unknown]

NARRATIVE: CASE EVENT DATE: 20240201
